FAERS Safety Report 22354313 (Version 1)
Quarter: 2023Q2

REPORT INFORMATION
  Report Type: Spontaneous
  Country: GB (occurrence: GB)
  Receive Date: 20230523
  Receipt Date: 20230523
  Transmission Date: 20230721
  Serious: Yes (Hospitalization)
  Sender: FDA-Public Use
  Company Number: GB-ROCHE-3346849

PATIENT
  Age: 57 Year

DRUGS (14)
  1. DOXORUBICIN HYDROCHLORIDE [Suspect]
     Active Substance: DOXORUBICIN HYDROCHLORIDE
     Indication: Follicular lymphoma
     Dosage: ON 11/NOV/2022, LAST DOSE WAS ADMINISTERED, THERAPY END DATE  : NASK
     Route: 065
     Dates: start: 20220729
  2. VINCRISTINE SULFATE [Suspect]
     Active Substance: VINCRISTINE SULFATE
     Indication: Follicular lymphoma
     Dosage: ON 11/NOV/2022, LAST DOSE WAS ADMINISTERED, THERAPY END DATE : NASK
     Route: 065
     Dates: start: 20220729
  3. PREDNISONE [Suspect]
     Active Substance: PREDNISONE
     Indication: Follicular lymphoma
     Dosage: ON 11/NOV/2022, LAST DOSE WAS ADMINISTERED, THERAPY END DATE : NASK
     Route: 065
     Dates: start: 20220729
  4. OBINUTUZUMAB [Suspect]
     Active Substance: OBINUTUZUMAB
     Indication: Follicular lymphoma
     Dosage: ON 11/NOV/2022, LAST DOSE WAS ADMINISTERED, THERAPY END DATE : NASK
     Route: 042
     Dates: start: 20220729
  5. ACYCLOVIR [Concomitant]
     Active Substance: ACYCLOVIR
     Indication: Product used for unknown indication
     Dosage: 800 MILLIGRAM DAILY; 400 MG, BD
     Route: 048
     Dates: start: 20220729
  6. CLARITHROMYCIN [Concomitant]
     Active Substance: CLARITHROMYCIN
     Indication: Lower respiratory tract infection
     Dosage: 1000 MILLIGRAM DAILY; 500 MG, BD
     Route: 048
     Dates: start: 20221212
  7. COTRIMOXAZOLE [Concomitant]
     Active Substance: SULFAMETHOXAZOLE\TRIMETHOPRIM
     Indication: Antifungal prophylaxis
     Dosage: 1920 MILLIGRAM DAILY; 960 MG, BD
     Route: 048
     Dates: start: 20220801
  8. IPRATROPIUM [Concomitant]
     Active Substance: IPRATROPIUM
     Indication: Lower respiratory tract infection
     Dosage: UNIT DOSE : 500 MILLICURIES
     Route: 065
     Dates: start: 20221211
  9. MEROPENEM [Concomitant]
     Active Substance: MEROPENEM
     Indication: Lower respiratory tract infection
     Dosage: UNIT DOSE : 1 GRAM, DURATION : 1 DAY
     Route: 042
     Dates: start: 20221211, end: 20221211
  10. NYSTATIN [Concomitant]
     Active Substance: NYSTATIN
     Indication: Oral candidiasis
     Dosage: UNIT DOSE : 1 ML
     Route: 048
     Dates: start: 20221212
  11. ACETAMINOPHEN [Concomitant]
     Active Substance: ACETAMINOPHEN
     Indication: Pyrexia
     Dosage: UNIT DOSE : 1 GRAM
     Route: 048
     Dates: start: 20221210
  12. ALBUTEROL [Concomitant]
     Active Substance: ALBUTEROL
     Indication: Lower respiratory tract infection
     Dosage: UNIT DOSE : 5 MG
     Route: 065
     Dates: start: 20221211
  13. PIPERACILLIN SODIUM\TAZOBACTAM SODIUM [Concomitant]
     Active Substance: PIPERACILLIN SODIUM\TAZOBACTAM SODIUM
     Indication: Lower respiratory tract infection
     Dosage: 13.5 GRAM DAILY; 4.5 GRAM, 3 TIMES A DAY
     Route: 042
     Dates: start: 20221211
  14. ALENDRONIC ACID [Concomitant]
     Active Substance: ALENDRONIC ACID
     Indication: Product used for unknown indication

REACTIONS (1)
  - Influenza [Not Recovered/Not Resolved]

NARRATIVE: CASE EVENT DATE: 20221208
